FAERS Safety Report 4295336-1 (Version None)
Quarter: 2004Q1

REPORT INFORMATION
  Report Type: 
  Country: None (occurrence: None)
  Receive Date: 20040216
  Receipt Date: 20030616
  Transmission Date: 20041129
  Serious: No
  Sender: FDA-Public Use
  Company Number: US-GLAXOSMITHKLINE-A0412664A

PATIENT
  Age: 56 Year
  Sex: Male

DRUGS (5)
  1. LAMICTAL [Suspect]
     Indication: BIPOLAR DISORDER
     Dosage: 300MG PER DAY
     Route: 048
  2. ADDERALL 10 [Concomitant]
  3. CLONAZEPAM [Concomitant]
  4. WELLBUTRIN [Concomitant]
  5. RISPERDAL [Concomitant]

REACTIONS (1)
  - RASH [None]
